FAERS Safety Report 17181783 (Version 1)
Quarter: 2019Q4

REPORT INFORMATION
  Report Type: Spontaneous
  Country: US (occurrence: US)
  Receive Date: 20191220
  Receipt Date: 20191220
  Transmission Date: 20200122
  Serious: No
  Sender: FDA-Public Use
  Company Number: US-009507513-1912USA008894

PATIENT
  Age: 25 Year
  Sex: Female

DRUGS (2)
  1. NEXPLANON [Suspect]
     Active Substance: ETONOGESTREL
     Indication: MENORRHAGIA
  2. NEXPLANON [Suspect]
     Active Substance: ETONOGESTREL
     Indication: INTRAUTERINE CONTRACEPTION
     Dosage: 20 MICROGRAM, ONE-TIME IMPLANT, INTRA-UTERINE
     Route: 015
     Dates: start: 20190430

REACTIONS (4)
  - Dysmenorrhoea [Unknown]
  - Vaginal haemorrhage [Unknown]
  - Incorrect route of product administration [Unknown]
  - Product use in unapproved indication [Unknown]

NARRATIVE: CASE EVENT DATE: 2019
